FAERS Safety Report 7201510-4 (Version None)
Quarter: 2010Q4

REPORT INFORMATION
  Report Type: 
  Country: None (occurrence: None)
  Receive Date: 20101229
  Receipt Date: 20101217
  Transmission Date: 20110411
  Serious: Yes (Death, Hospitalization)
  Sender: FDA-Public Use
  Company Number: JP-SANOFI-AVENTIS-2010SA075026

PATIENT
  Age: 79 Year
  Sex: Male
  Weight: 50.3 kg

DRUGS (11)
  1. ELPLAT [Suspect]
     Indication: GASTRIC CANCER
     Route: 042
     Dates: start: 20100917, end: 20100917
  2. ELPLAT [Suspect]
     Route: 042
     Dates: start: 20101027, end: 20101027
  3. ELPLAT [Suspect]
     Route: 042
     Dates: start: 20101122, end: 20101122
  4. TS-1 [Suspect]
     Indication: GASTRIC CANCER
     Route: 048
     Dates: start: 20100917
  5. TS-1 [Suspect]
     Route: 048
     Dates: start: 20101027
  6. TS-1 [Suspect]
     Route: 048
     Dates: start: 20101122, end: 20101204
  7. URINORM [Concomitant]
     Route: 048
     Dates: start: 20101123, end: 20101204
  8. NOREPINEPHRINE BITARTRATE [Concomitant]
     Route: 042
     Dates: start: 20101205, end: 20101211
  9. DOPAMINE HYDROCHLORIDE [Concomitant]
     Route: 042
     Dates: start: 20101205, end: 20101211
  10. NAFAMOSTAT [Concomitant]
     Indication: DISSEMINATED INTRAVASCULAR COAGULATION
     Route: 042
     Dates: start: 20101206, end: 20101211
  11. LASIX [Concomitant]
     Dates: start: 20101206

REACTIONS (12)
  - BONE MARROW FAILURE [None]
  - BONE MARROW TUMOUR CELL INFILTRATION [None]
  - CIRCULATORY COLLAPSE [None]
  - EXTRASYSTOLES [None]
  - INJECTION SITE HAEMORRHAGE [None]
  - PANCYTOPENIA [None]
  - PNEUMONIA FUNGAL [None]
  - PSEUDOMONAS INFECTION [None]
  - PULMONARY OEDEMA [None]
  - RENAL DISORDER [None]
  - RESPIRATORY FAILURE [None]
  - SEPTIC SHOCK [None]
